FAERS Safety Report 24878939 (Version 1)
Quarter: 2025Q1

REPORT INFORMATION
  Report Type: Spontaneous
  Country: US (occurrence: US)
  Receive Date: 20250123
  Receipt Date: 20250123
  Transmission Date: 20250408
  Serious: No
  Sender: CATALYST PHARMA
  Company Number: US-CATALYST PHARMACEUTICALS, INC-US-CATA-23-00687

PATIENT
  Age: 73 Year
  Sex: Female
  Weight: 67.574 kg

DRUGS (15)
  1. FIRDAPSE [Suspect]
     Active Substance: AMIFAMPRIDINE PHOSPHATE
     Indication: Myasthenic syndrome
     Dosage: 0.5 TABLETS, 3X A DAY FOR 7 DAYS THEN INCREASING BY 0.5 TABLETS EVERY 7 DAYS UNTIL REACHING 1.5 TABL
     Route: 048
     Dates: start: 20200929, end: 202103
  2. FIRDAPSE [Suspect]
     Active Substance: AMIFAMPRIDINE PHOSPHATE
     Dosage: 1 TABLET 3 TIMES DAILY
     Route: 048
     Dates: start: 20231027, end: 2023
  3. FIRDAPSE [Suspect]
     Active Substance: AMIFAMPRIDINE PHOSPHATE
     Dosage: 1.5 TABLETS 3 TIMES DAILY
     Route: 048
     Dates: start: 20231201, end: 202312
  4. FIRDAPSE [Suspect]
     Active Substance: AMIFAMPRIDINE PHOSPHATE
     Dosage: 1 TABLET 3 TIMES DAILY
     Route: 048
     Dates: start: 202312, end: 20240101
  5. FIRDAPSE [Suspect]
     Active Substance: AMIFAMPRIDINE PHOSPHATE
     Dosage: 15 MG IN THE MORNING, 10 MG IN AFTERNOON AND 10 MG IN THE EVENING
     Route: 048
     Dates: start: 20240102, end: 202401
  6. FIRDAPSE [Suspect]
     Active Substance: AMIFAMPRIDINE PHOSPHATE
     Dosage: 1.5 TABLETS 3 TIMES DAILY
     Route: 048
     Dates: start: 202401, end: 2024
  7. FIRDAPSE [Suspect]
     Active Substance: AMIFAMPRIDINE PHOSPHATE
     Dosage: 60 MG PER DAY (2 TABLETS THREE TIMES A DAY)
     Route: 048
     Dates: start: 20210218, end: 2024
  8. FIRDAPSE [Suspect]
     Active Substance: AMIFAMPRIDINE PHOSPHATE
     Dosage: 5 MG THREE TIMES A DAY
     Route: 048
     Dates: start: 2024
  9. AMLODIPINE [Concomitant]
     Active Substance: AMLODIPINE BESYLATE
     Indication: Product used for unknown indication
     Dosage: 2.5 MG DAILY
     Route: 065
  10. CLOTRIMAZOLE [Concomitant]
     Active Substance: CLOTRIMAZOLE
     Indication: Product used for unknown indication
     Dosage: 1% SOLUTION TWICE DAILY
     Route: 065
  11. HYDROCHLOROTHIAZIDE [Concomitant]
     Active Substance: HYDROCHLOROTHIAZIDE
     Indication: Product used for unknown indication
     Dosage: 25 MG DAILY
     Route: 065
  12. IBUPROFEN [Concomitant]
     Active Substance: IBUPROFEN
     Indication: Pain
     Route: 065
  13. LEVOTHYROXINE [Concomitant]
     Active Substance: LEVOTHYROXINE
     Indication: Product used for unknown indication
     Dosage: 125 MCG DAILY
     Route: 065
  14. PEPCID COMPLETE [Concomitant]
     Active Substance: CALCIUM CARBONATE\FAMOTIDINE\MAGNESIUM HYDROXIDE
     Indication: Product used for unknown indication
     Route: 065
  15. PYRIDOSTIGMINE [Concomitant]
     Active Substance: PYRIDOSTIGMINE
     Indication: Product used for unknown indication
     Dosage: 30 MG TWICE A DAY
     Route: 065

REACTIONS (7)
  - Dry mouth [Unknown]
  - Dyspepsia [Unknown]
  - Alopecia [Unknown]
  - Eye pain [Unknown]
  - Abdominal discomfort [Recovered/Resolved]
  - Constipation [Recovered/Resolved]
  - Dizziness [Unknown]

NARRATIVE: CASE EVENT DATE: 20240102
